FAERS Safety Report 9312612 (Version 3)
Quarter: 2013Q2

REPORT INFORMATION
  Report Type: Spontaneous
  Country: FR (occurrence: FR)
  Receive Date: 20130528
  Receipt Date: 20130625
  Transmission Date: 20140414
  Serious: No
  Sender: FDA-Public Use
  Company Number: FR-GLAXOSMITHKLINE-B0893982A

PATIENT
  Age: 58 Year
  Sex: Female
  Weight: 57 kg

DRUGS (7)
  1. FLIXOTIDE [Suspect]
     Indication: BRONCHITIS
     Dosage: 1000MCG TWICE PER DAY
     Route: 055
     Dates: start: 201304, end: 20130531
  2. VIBRAMYCINE [Concomitant]
     Indication: BRONCHITIS
     Route: 065
     Dates: start: 201304
  3. SEREVENT [Concomitant]
     Indication: BRONCHITIS
     Dosage: 100MCG TWICE PER DAY
     Route: 055
     Dates: start: 201304
  4. VENTOLINE [Concomitant]
     Indication: ASTHMA
     Dosage: 100MCG AS REQUIRED
     Route: 055
  5. BUDESONIDE [Concomitant]
     Indication: APHONIA
     Route: 055
     Dates: start: 201305, end: 201305
  6. PREDNISOLONE [Concomitant]
     Indication: APHONIA
     Route: 048
     Dates: start: 201305, end: 201305
  7. FLIXOTIDE [Concomitant]
     Indication: ASTHMA
     Dosage: 250MCG PER DAY
     Route: 055
     Dates: end: 201304

REACTIONS (5)
  - Dysphonia [Recovered/Resolved]
  - Chest pain [Recovering/Resolving]
  - Chest discomfort [Recovering/Resolving]
  - Laryngitis [Not Recovered/Not Resolved]
  - Off label use [Unknown]
